FAERS Safety Report 6701297-5 (Version None)
Quarter: 2010Q2

REPORT INFORMATION
  Report Type: 
  Country: None (occurrence: None)
  Receive Date: 20100429
  Receipt Date: 20100422
  Transmission Date: 20101027
  Serious: Yes (Hospitalization)
  Sender: FDA-Public Use
  Company Number: US-BIOGENIDEC-2009BI036240

PATIENT
  Age: 50 Year
  Sex: Male
  Weight: 128 kg

DRUGS (1)
  1. TYSABRI [Suspect]
     Indication: MULTIPLE SCLEROSIS
     Route: 042
     Dates: start: 20070605, end: 20091001

REACTIONS (25)
  - AMNESIA [None]
  - ARTERIAL DISORDER [None]
  - CARDIAC PACEMAKER INSERTION [None]
  - CARDIOMYOPATHY [None]
  - CHEST PAIN [None]
  - CHONDRITIS [None]
  - CORONARY ARTERY OCCLUSION [None]
  - EYE INFECTION [None]
  - EYE PAIN [None]
  - GENERAL SYMPTOM [None]
  - GINGIVAL INFECTION [None]
  - HAEMATOMA [None]
  - HAEMORRHAGE [None]
  - HEADACHE [None]
  - HYPOTENSION [None]
  - LOSS OF CONSCIOUSNESS [None]
  - MULTIPLE SCLEROSIS RELAPSE [None]
  - OEDEMA PERIPHERAL [None]
  - PAIN [None]
  - PAIN IN EXTREMITY [None]
  - PANIC ATTACK [None]
  - POOR VENOUS ACCESS [None]
  - RECTAL HAEMORRHAGE [None]
  - THROMBOSIS [None]
  - TREMOR [None]
